FAERS Safety Report 7752374-1 (Version None)
Quarter: 2011Q3

REPORT INFORMATION
  Report Type: 
  Country: None (occurrence: None)
  Receive Date: 20110913
  Receipt Date: 20110907
  Transmission Date: 20111222
  Serious: Yes (Death, Hospitalization)
  Sender: FDA-Public Use
  Company Number: IMP_05426_2011

PATIENT
  Age: 37 Year
  Sex: Female

DRUGS (3)
  1. ZOLPIDEM [Concomitant]
  2. CHLOROQUINE PHOSPHATE [Suspect]
     Indication: PRODUCT USED FOR UNKNOWN INDICATION
     Dosage: DF
  3. FLUVOXAMINE [Concomitant]

REACTIONS (17)
  - APNOEA [None]
  - HYPOTHERMIA [None]
  - ELECTROCARDIOGRAM QT PROLONGED [None]
  - TOXICITY TO VARIOUS AGENTS [None]
  - VENTRICULAR FIBRILLATION [None]
  - CARDIOTOXICITY [None]
  - LOSS OF CONSCIOUSNESS [None]
  - CARDIAC ARREST [None]
  - OVERDOSE [None]
  - NAUSEA [None]
  - HYPOKALAEMIA [None]
  - INTENTIONAL SELF-INJURY [None]
  - MALAISE [None]
  - SUICIDE ATTEMPT [None]
  - RESTLESSNESS [None]
  - AGITATION [None]
  - PULSE ABSENT [None]
